FAERS Safety Report 6785208-2 (Version None)
Quarter: 2010Q2

REPORT INFORMATION
  Report Type: 
  Country: None (occurrence: None)
  Receive Date: 20100622
  Receipt Date: 20100622
  Transmission Date: 20101027
  Serious: Yes (Hospitalization)
  Sender: FDA-Public Use
  Company Number: None

PATIENT
  Age: 70 Year
  Sex: Male
  Weight: 70 kg

DRUGS (14)
  1. LITHIUM CARBONATE [Suspect]
     Indication: DEPRESSION
     Dosage: 450MG BID PO  (CHRONIC)
     Route: 048
  2. LOTREL [Concomitant]
  3. BISACODYL [Concomitant]
  4. SIMETHICONE [Concomitant]
  5. BISMUTH [Concomitant]
  6. HCTZ [Concomitant]
  7. OMEPRAZOLE [Concomitant]
  8. VIT B12 [Concomitant]
  9. VIT C [Concomitant]
  10. ADVAIR DISKUS 100/50 [Concomitant]
  11. AMITIZA [Concomitant]
  12. DOXEPIN HCL [Concomitant]
  13. MIRAPEX [Concomitant]
  14. LEVOFLOXACIN [Concomitant]

REACTIONS (5)
  - GAIT DISTURBANCE [None]
  - MALAISE [None]
  - RENAL FAILURE ACUTE [None]
  - THERAPEUTIC AGENT TOXICITY [None]
  - TREMOR [None]
